FAERS Safety Report 19804182 (Version 1)
Quarter: 2021Q3

REPORT INFORMATION
  Report Type: Spontaneous
  Country: US (occurrence: US)
  Receive Date: 20210908
  Receipt Date: 20210908
  Transmission Date: 20211014
  Serious: No
  Sender: FDA-Public Use
  Company Number: US-FARMAPROD-202106-1028

PATIENT
  Sex: Female

DRUGS (8)
  1. OXERVATE [Suspect]
     Active Substance: CENEGERMIN-BKBJ
     Indication: NEUROTROPHIC KERATOPATHY
     Route: 047
     Dates: start: 20210621
  2. MURO?128 [Concomitant]
  3. OXERVATE [Suspect]
     Active Substance: CENEGERMIN-BKBJ
     Indication: ULCERATIVE KERATITIS
  4. VITAMINE D [Concomitant]
     Active Substance: CHOLECALCIFEROL
  5. VITAMINE B [Concomitant]
  6. SYNTHROID [Concomitant]
     Active Substance: LEVOTHYROXINE SODIUM
  7. POLYMYXIN B SULTRIMETHOPRIM [Concomitant]
  8. PREDNISOLONE. [Concomitant]
     Active Substance: PREDNISOLONE
     Dosage: 15 MG/5 ML SOLUTION

REACTIONS (3)
  - Photophobia [Unknown]
  - Eye pain [Unknown]
  - Abnormal sensation in eye [Unknown]
